FAERS Safety Report 17427009 (Version 2)
Quarter: 2020Q1

REPORT INFORMATION
  Report Type: Spontaneous
  Country: JP (occurrence: JP)
  Receive Date: 20200218
  Receipt Date: 20200313
  Transmission Date: 20200409
  Serious: Yes (Hospitalization, Other)
  Sender: FDA-Public Use
  Company Number: JP-GLAXOSMITHKLINE-JP2020025891

PATIENT
  Age: 9 Year
  Sex: Female

DRUGS (3)
  1. RELENZA [Suspect]
     Active Substance: ZANAMIVIR
     Indication: INFLUENZA
     Dosage: 10 MG, BID
     Route: 055
  2. GLUCOSE [Suspect]
     Active Substance: DEXTROSE
     Indication: GASTROENTERITIS
     Dosage: UNK
     Route: 041
  3. ALCOHOL. [Suspect]
     Active Substance: ALCOHOL
     Indication: INFECTION PROPHYLAXIS
     Dosage: UNK
     Route: 003

REACTIONS (2)
  - Soft tissue necrosis [Recovering/Resolving]
  - Skin necrosis [Recovering/Resolving]
